FAERS Safety Report 4341922-X (Version None)
Quarter: 2004Q2

REPORT INFORMATION
  Report Type: 
  Country: None (occurrence: None)
  Receive Date: 20040415
  Receipt Date: 20040401
  Transmission Date: 20050107
  Serious: Yes (Death)
  Sender: FDA-Public Use
  Company Number: US_031199068

PATIENT
  Age: 21 Year
  Sex: Female
  Weight: 84 kg

DRUGS (7)
  1. ZYPREXA [Suspect]
     Indication: PSYCHOTIC DISORDER
     Dosage: 15 MG/DAY
     Dates: start: 20010901, end: 20011123
  2. SEROQUEL [Concomitant]
  3. ACTIVAN (LORAZEPAM) [Concomitant]
  4. VISTARIL [Concomitant]
  5. DEPO-PROVERA [Concomitant]
  6. SEPTRA [Concomitant]
  7. AMBIEN [Concomitant]

REACTIONS (5)
  - HEADACHE [None]
  - METABOLIC DISORDER [None]
  - PANCREATITIS HAEMORRHAGIC [None]
  - REFUSAL OF TREATMENT BY PATIENT [None]
  - URINARY TRACT INFECTION [None]
